FAERS Safety Report 9319279 (Version 1)
Quarter: 2013Q2

REPORT INFORMATION
  Report Type: Report from Study
  Country: BE (occurrence: BE)
  Receive Date: 20130530
  Receipt Date: 20130530
  Transmission Date: 20140414
  Serious: Yes (Hospitalization)
  Sender: FDA-Public Use
  Company Number: PHHO2013BE007111

PATIENT
  Sex: 0

DRUGS (3)
  1. CGS 20267 [Suspect]
     Indication: BREAST CANCER
     Dosage: 2.5 MG, QD
     Route: 048
     Dates: start: 20100422, end: 20130411
  2. REMERGON [Concomitant]
     Dosage: UNK
     Route: 048
     Dates: start: 201204
  3. CALCIUM CARBONATE [Concomitant]
     Dosage: UNK
     Route: 048
     Dates: start: 20121031

REACTIONS (1)
  - Hemiplegia [Recovered/Resolved with Sequelae]
